FAERS Safety Report 7540969-X (Version None)
Quarter: 2011Q2

REPORT INFORMATION
  Report Type: 
  Country: None (occurrence: None)
  Receive Date: 20110610
  Receipt Date: 20110603
  Transmission Date: 20111010
  Serious: Yes (Death, Hospitalization)
  Sender: FDA-Public Use
  Company Number: FR-GENENTECH-300148

PATIENT
  Age: 39 Year
  Sex: Female

DRUGS (7)
  1. PREDNISONE [Concomitant]
     Indication: PRODUCT USED FOR UNKNOWN INDICATION
  2. AZATHIOPRINE SODIUM [Suspect]
     Indication: POLYMYOSITIS
     Dosage: 30900 MG, UNK
     Route: 065
  3. MYCOPHENOLATE MEFETIL [Suspect]
     Indication: POLYMYOSITIS
     Dosage: 27 G, UNK
     Route: 065
  4. METHOTREXATE [Suspect]
     Indication: POLYMYOSITIS
     Dosage: 1350 MG, UNK
     Route: 065
  5. CYCLOSPORINE [Suspect]
     Indication: POLYMYOSITIS
     Dosage: 4500 MG, UNK
     Route: 065
  6. RITUXAN [Suspect]
     Indication: POLYMYOSITIS
     Dosage: 1 G, DAYS 2+15
     Route: 042
     Dates: start: 20090101
  7. RITUXAN [Suspect]
     Dosage: 1 G, Q6M
     Route: 042

REACTIONS (3)
  - PNEUMONIA ASPIRATION [None]
  - DRUG INEFFECTIVE [None]
  - PROGRESSIVE MULTIFOCAL LEUKOENCEPHALOPATHY [None]
